FAERS Safety Report 13648194 (Version 2)
Quarter: 2017Q2

REPORT INFORMATION
  Report Type: Spontaneous
  Country: US (occurrence: US)
  Receive Date: 20170613
  Receipt Date: 20170623
  Transmission Date: 20170830
  Serious: Yes (Other)
  Sender: FDA-Public Use
  Company Number: US-AMGEN-USASP2017071604

PATIENT
  Age: 70 Year
  Sex: Female
  Weight: 63.39 kg

DRUGS (2)
  1. PROLIA [Suspect]
     Active Substance: DENOSUMAB
     Indication: OSTEOPOROSIS POSTMENOPAUSAL
     Dosage: 60 MG, Q6MO
     Route: 058
     Dates: start: 20150601
  2. PROLIA [Suspect]
     Active Substance: DENOSUMAB
     Indication: SENILE OSTEOPOROSIS

REACTIONS (6)
  - Rash erythematous [Not Recovered/Not Resolved]
  - Erythema [Unknown]
  - Swelling face [Unknown]
  - Rash pruritic [Not Recovered/Not Resolved]
  - Skin burning sensation [Unknown]
  - Urticaria [Recovering/Resolving]

NARRATIVE: CASE EVENT DATE: 201607
